FAERS Safety Report 9112791 (Version 9)
Quarter: 2017Q1

REPORT INFORMATION
  Report Type: Report from Study
  Country: US (occurrence: US)
  Receive Date: 20130211
  Receipt Date: 20170303
  Transmission Date: 20170429
  Serious: Yes (Death, Other)
  Sender: FDA-Public Use
  Company Number: US-ROCHE-1187032

PATIENT

DRUGS (5)
  1. LEUCOVORIN. [Suspect]
     Active Substance: LEUCOVORIN
     Indication: COLORECTAL CANCER METASTATIC
     Dosage: ADMINISTERED ON DAY 1 OF EACH CYCLE.
     Route: 065
  2. 5-FLUOROURACIL [Suspect]
     Active Substance: FLUOROURACIL
     Indication: COLORECTAL CANCER METASTATIC
     Dosage: ON DAYS 1 AND 2 OF EACH CYCLE
     Route: 040
  3. BEVACIZUMAB [Suspect]
     Active Substance: BEVACIZUMAB
     Indication: COLORECTAL CANCER METASTATIC
     Route: 065
  4. 5-FLUOROURACIL [Suspect]
     Active Substance: FLUOROURACIL
     Dosage: ADMINISTERED OVER 46 H ON DAY 2;
     Route: 042
  5. OXALIPLATIN. [Suspect]
     Active Substance: OXALIPLATIN
     Indication: COLORECTAL CANCER METASTATIC
     Dosage: ADMINISTERED ON DAY 1
     Route: 042

REACTIONS (15)
  - Stomatitis [Unknown]
  - Small intestinal perforation [Fatal]
  - Hypertension [Unknown]
  - Fatigue [Unknown]
  - Hypokalaemia [Unknown]
  - Pyrexia [Unknown]
  - Nausea [Unknown]
  - Decreased appetite [Unknown]
  - Intestinal perforation [Fatal]
  - Skin disorder [Unknown]
  - Dehydration [Unknown]
  - Mucosal inflammation [Unknown]
  - Weight decreased [Unknown]
  - Dysaesthesia [Unknown]
  - Infusion related reaction [Unknown]
